FAERS Safety Report 4334079-2 (Version None)
Quarter: 2004Q2

REPORT INFORMATION
  Report Type: 
  Country: None (occurrence: None)
  Receive Date: 20040402
  Receipt Date: 20040323
  Transmission Date: 20050107
  Serious: Yes (Other)
  Sender: FDA-Public Use
  Company Number: 2004012926

PATIENT
  Age: 60 Year
  Sex: Female
  Weight: 88 kg

DRUGS (6)
  1. ZOLOFT [Suspect]
     Indication: DEPRESSION
     Dosage: 50 MG DAILY, ORAL
     Route: 048
     Dates: start: 20040209
  2. MEPRONIZINE (MEPROBAMATE, ACEPROMETAZINE) [Concomitant]
  3. HYZAAR (HYDROCHLOROTBIAZIDE, LOSARTAN POTASSIUM) [Concomitant]
  4. ATENOLOL [Concomitant]
  5. OMEPRAZOLE [Concomitant]
  6. ACETAMINOPHEN [Concomitant]

REACTIONS (1)
  - TOXIC EPIDERMAL NECROLYSIS [None]
